FAERS Safety Report 10175809 (Version 2)
Quarter: 2014Q2

REPORT INFORMATION
  Report Type: Spontaneous
  Country: US (occurrence: None)
  Receive Date: 20140416
  Receipt Date: 20140604
  Transmission Date: 20141212
  Serious: Yes (Other)
  Sender: FDA-Public Use
  Company Number: 163-POMAL-14010435

PATIENT
  Age: 70 Year
  Sex: Male
  Weight: 79.38 kg

DRUGS (19)
  1. POMALYST [Suspect]
     Indication: PLASMA CELL MYELOMA
     Route: 048
     Dates: start: 201301, end: 201308
  2. ZOMETA(ZOLEDRONIC ACID) [Concomitant]
  3. XIFAXAN(RIFAXIMIN) [Concomitant]
  4. ACYCLOVIR(ACICLOVIR) [Concomitant]
  5. AMBIEN(ZOLPIDEM TARTRATE) [Concomitant]
  6. ASPIRIN(ACETYLSALICYLIC ACI) [Concomitant]
  7. ATENOLOL(ATENOLOL) [Concomitant]
  8. COMPAZINE(PROCHLORPERAZINE EDISYLATE) [Concomitant]
  9. GLYCOLAX(MACROGOL) [Concomitant]
  10. LOMOTIL(LOMOTIL) [Concomitant]
  11. ONDANSETRON(ONDANSETRON) [Concomitant]
  12. PALMOMIDAZINE(OTHER THERAPEUTIC PRODUCTS) [Concomitant]
  13. FEXOFENADINE HCL(FEXOFENADINE HYDROCHLORIDE) [Concomitant]
  14. FLUCONAZOLE(FLUCONAZOLE) [Concomitant]
  15. PANTOPRAZOLE SODIUM(PANTOPRAZOLE SODIUM) [Concomitant]
  16. PERCOCET(OXYCOCET) [Concomitant]
  17. PROCHLORPERAZINE MALEATE(PROCHLORPERAZINE MALEATE) [Concomitant]
  18. TEMAZEPAM(TEMAZEPAM) [Concomitant]
  19. VICODIN(VICODIN)(TABLETS) [Concomitant]

REACTIONS (4)
  - Laboratory test abnormal [None]
  - Diarrhoea [None]
  - Nausea [None]
  - Vomiting [None]
